FAERS Safety Report 23840924 (Version 6)
Quarter: 2024Q4

REPORT INFORMATION
  Report Type: Report from Study
  Country: CA (occurrence: CA)
  Receive Date: 20240510
  Receipt Date: 20241206
  Transmission Date: 20250114
  Serious: Yes (Other)
  Sender: JOHNSON AND JOHNSON
  Company Number: CA-JNJFOC-20240452012

PATIENT
  Age: 45 Year
  Sex: Female
  Weight: 130 kg

DRUGS (4)
  1. SIMPONI [Suspect]
     Active Substance: GOLIMUMAB
     Indication: Ankylosing spondylitis
     Route: 041
     Dates: start: 20240124
  2. SIMPONI [Suspect]
     Active Substance: GOLIMUMAB
     Route: 041
  3. SIMPONI [Suspect]
     Active Substance: GOLIMUMAB
     Route: 041
  4. SIMPONI [Suspect]
     Active Substance: GOLIMUMAB
     Route: 041

REACTIONS (9)
  - Ankylosing spondylitis [Unknown]
  - Metabolic surgery [Unknown]
  - Fatigue [Recovered/Resolved]
  - Cluster headache [Recovered/Resolved]
  - Respiratory syncytial virus infection [Recovering/Resolving]
  - Labyrinthitis [Unknown]
  - COVID-19 [Unknown]
  - Body temperature decreased [Unknown]
  - Weight decreased [Unknown]

NARRATIVE: CASE EVENT DATE: 20240221
